FAERS Safety Report 5223935-9 (Version None)
Quarter: 2007Q1

REPORT INFORMATION
  Report Type: 
  Country: None (occurrence: None)
  Receive Date: 20070130
  Receipt Date: 20070119
  Transmission Date: 20070707
  Serious: Yes (Congenital Anomaly)
  Sender: FDA-Public Use
  Company Number: FR-ROCHE-473120

PATIENT
  Age: 40 Year
  Sex: Male
  Weight: 89 kg

DRUGS (2)
  1. PEGASYS [Suspect]
     Indication: HEPATITIS C
     Route: 058
     Dates: start: 20041203
  2. COPEGUS [Suspect]
     Route: 048
     Dates: start: 20041203

REACTIONS (2)
  - ABORTION INDUCED [None]
  - TRISOMY 21 [None]
